FAERS Safety Report 8453137-4 (Version None)
Quarter: 2012Q2

REPORT INFORMATION
  Report Type: 
  Country: None (occurrence: None)
  Receive Date: 20120620
  Receipt Date: 20120508
  Transmission Date: 20120825
  Serious: No
  Sender: FDA-Public Use
  Company Number: US-VERTEX PHARMACEUTICALS INC.-AE-2012-006718

PATIENT
  Sex: Male
  Weight: 100.79 kg

DRUGS (11)
  1. RIBASPHERE [Concomitant]
     Indication: HEPATITIS C
     Route: 048
     Dates: start: 20120428
  2. TRIBENZOR [Concomitant]
     Route: 048
  3. FLAX SEED OIL [Concomitant]
     Route: 048
  4. WELCHOL [Concomitant]
     Route: 048
  5. BENZONATATE [Concomitant]
     Route: 048
  6. LOVAZA [Concomitant]
     Route: 048
  7. FISH OIL [Concomitant]
     Route: 048
  8. SAW PALMETTO [Concomitant]
     Route: 048
  9. PEGASYS [Concomitant]
     Indication: HEPATITIS C
     Route: 058
     Dates: start: 20120428
  10. MULTI-VITAMINS [Concomitant]
     Route: 048
  11. INCIVEK [Suspect]
     Indication: HEPATITIS C
     Route: 048
     Dates: start: 20120428

REACTIONS (2)
  - INFLUENZA LIKE ILLNESS [None]
  - COUGH [None]
